FAERS Safety Report 17997074 (Version 1)
Quarter: 2020Q3

REPORT INFORMATION
  Report Type: Spontaneous
  Country: HR (occurrence: HR)
  Receive Date: 20200708
  Receipt Date: 20200708
  Transmission Date: 20201103
  Serious: Yes (Other)
  Sender: FDA-Public Use
  Company Number: NVSC2020HR187577

PATIENT
  Age: 74 Year
  Sex: Female
  Weight: 59 kg

DRUGS (5)
  1. AMYZOL [Suspect]
     Active Substance: AMITRIPTYLINE
     Indication: PERIPHERAL SENSORY NEUROPATHY
     Dosage: 10 MG, QD
     Route: 048
     Dates: start: 20200502, end: 20200508
  2. PREGABALIN. [Concomitant]
     Active Substance: PREGABALIN
     Indication: PERIPHERAL SENSORY NEUROPATHY
     Dosage: 75 MG
     Route: 065
     Dates: start: 201907
  3. PINOX [Concomitant]
     Indication: HYPERTENSION
     Dosage: UNK
     Route: 048
  4. VALSACOMBI [Concomitant]
     Active Substance: HYDROCHLOROTHIAZIDE\VALSARTAN
     Indication: HYPERTENSION
     Dosage: UNK
     Route: 048
  5. TARGINACT [Concomitant]
     Active Substance: NALOXONE HYDROCHLORIDE\OXYCODONE HYDROCHLORIDE
     Indication: PERIPHERAL SENSORY NEUROPATHY
     Dosage: UNK
     Route: 048
     Dates: start: 202004

REACTIONS (5)
  - Hiccups [Recovered/Resolved]
  - Overdose [Recovered/Resolved]
  - Vertigo [Recovered/Resolved]
  - Ataxia [Recovered/Resolved]
  - Nausea [Recovered/Resolved]

NARRATIVE: CASE EVENT DATE: 20200508
